FAERS Safety Report 20064676 (Version 1)
Quarter: 2021Q4

REPORT INFORMATION
  Report Type: Report from Study
  Country: JP (occurrence: JP)
  Receive Date: 20211112
  Receipt Date: 20211112
  Transmission Date: 20220303
  Serious: Yes (Hospitalization)
  Sender: FDA-Public Use
  Company Number: JP-JNJJAKJPN-A20124373

PATIENT
  Age: 17 Year
  Sex: Male

DRUGS (22)
  1. MIGLUSTAT [Suspect]
     Active Substance: MIGLUSTAT
     Indication: Niemann-Pick disease
     Dosage: 100 MG, TID
     Route: 048
     Dates: start: 20130110, end: 20131227
  2. MIGLUSTAT [Suspect]
     Active Substance: MIGLUSTAT
     Dosage: 100 MG, OD
     Route: 048
     Dates: start: 20120802, end: 20120803
  3. MIGLUSTAT [Suspect]
     Active Substance: MIGLUSTAT
     Dosage: 100 MG, BID
     Route: 048
     Dates: start: 20120804, end: 20120805
  4. MIGLUSTAT [Suspect]
     Active Substance: MIGLUSTAT
     Dosage: 100 MG, TID
     Route: 048
     Dates: start: 20120806, end: 20120905
  5. MIGLUSTAT [Suspect]
     Active Substance: MIGLUSTAT
     Dosage: 200MG IN THE MORNING,100MG IN THE AFTERNOON,200MG IN THE EVENING
     Route: 048
     Dates: start: 20120906, end: 20121001
  6. MIGLUSTAT [Suspect]
     Active Substance: MIGLUSTAT
     Dosage: 200 MG, TID
     Route: 048
     Dates: start: 20121002, end: 20121004
  7. MIGLUSTAT [Suspect]
     Active Substance: MIGLUSTAT
     Dosage: 100 MG, TID
     Route: 048
     Dates: start: 20121005, end: 20121005
  8. MIGLUSTAT [Suspect]
     Active Substance: MIGLUSTAT
     Dosage: 200 MG, BID
     Route: 048
     Dates: start: 20121006, end: 20130109
  9. MIGLUSTAT [Suspect]
     Active Substance: MIGLUSTAT
     Dosage: 100 MG, OD
     Route: 048
     Dates: start: 20140118, end: 20140228
  10. MIGLUSTAT [Suspect]
     Active Substance: MIGLUSTAT
     Dosage: 100 MG, BID
     Route: 048
     Dates: start: 20140228, end: 20140315
  11. MIGLUSTAT [Suspect]
     Active Substance: MIGLUSTAT
     Dosage: 100 MG, TID
     Route: 048
     Dates: start: 20140315, end: 20140603
  12. MIGLUSTAT [Suspect]
     Active Substance: MIGLUSTAT
     Dosage: 100MG IN THE MORNING,100MG IN THE AFTERNOON,200MG IN THE EVENING
     Route: 048
     Dates: start: 20140604, end: 20140901
  13. MIGLUSTAT [Suspect]
     Active Substance: MIGLUSTAT
     Dosage: 200MG IN THE MORNING,100MG IN THE AFTERNOON,200MG IN THE EVENING
     Route: 048
     Dates: start: 20140902, end: 20141114
  14. MIGLUSTAT [Suspect]
     Active Substance: MIGLUSTAT
     Dosage: 200 MG, TID
     Route: 048
     Dates: start: 20141115
  15. LYSOZYME HYDROCHLORIDE [Concomitant]
     Active Substance: LYSOZYME HYDROCHLORIDE
  16. FEXOFENADINE HYDROCHLORIDE [Concomitant]
     Active Substance: FEXOFENADINE HYDROCHLORIDE
  17. BIFIDOBACTERIUM SPP. [Concomitant]
     Active Substance: BIFIDOBACTERIUM SPP.
  18. NEXIUM [Concomitant]
     Active Substance: ESOMEPRAZOLE MAGNESIUM
     Route: 048
     Dates: start: 20141204, end: 20150115
  19. GASTER [Concomitant]
     Active Substance: FAMOTIDINE
     Dates: start: 20130826, end: 20130829
  20. CINAL [ASCORBIC ACID;CALCIUM PANTOTHENATE] [Concomitant]
     Indication: Vitamin C deficiency
     Route: 048
     Dates: start: 20150907, end: 20170301
  21. HICEE [ASCORBIC ACID] [Concomitant]
     Indication: Vitamin C deficiency
     Route: 048
     Dates: start: 20170302, end: 20180801
  22. AMPICILLIN SODIUM\SULBACTAM SODIUM [Concomitant]
     Active Substance: AMPICILLIN SODIUM\SULBACTAM SODIUM
     Route: 042
     Dates: start: 20130826, end: 20130829

REACTIONS (19)
  - Epilepsy [Not Recovered/Not Resolved]
  - Loss of consciousness [Recovered/Resolved]
  - Fall [Recovered/Resolved]
  - Generalised tonic-clonic seizure [Recovered/Resolved]
  - Cyanosis [Recovered/Resolved]
  - Pneumonia aspiration [Unknown]
  - Vomiting [Unknown]
  - Thermal burn [Recovering/Resolving]
  - Duodenal ulcer [Recovering/Resolving]
  - Red blood cell count decreased [Recovering/Resolving]
  - Haemoglobin decreased [Recovering/Resolving]
  - Haematocrit decreased [Recovering/Resolving]
  - Enteritis infectious [Recovered/Resolved]
  - Diarrhoea [Recovered/Resolved]
  - Nasopharyngitis [Recovered/Resolved]
  - Pneumonia [Recovered/Resolved]
  - Seizure [Recovered/Resolved]
  - Somnolence [Recovering/Resolving]
  - Pyrexia [Recovered/Resolved]

NARRATIVE: CASE EVENT DATE: 20120809
